FAERS Safety Report 5651205-3 (Version None)
Quarter: 2008Q1

REPORT INFORMATION
  Report Type: 
  Country: None (occurrence: None)
  Receive Date: 20080305
  Receipt Date: 20080222
  Transmission Date: 20080703
  Serious: Yes (Hospitalization)
  Sender: FDA-Public Use
  Company Number: IT-BAYER-200813539GPV

PATIENT
  Age: 85 Year
  Sex: Female

DRUGS (1)
  1. ULTRAVIST (PHARMACY BULK) [Suspect]
     Indication: COMPUTERISED TOMOGRAM
     Route: 042
     Dates: start: 20060725, end: 20060725

REACTIONS (7)
  - ACUTE PULMONARY OEDEMA [None]
  - BRADYCARDIA [None]
  - CYANOSIS [None]
  - FOAMING AT MOUTH [None]
  - HYPERHIDROSIS [None]
  - HYPOTENSION [None]
  - RESPIRATORY FAILURE [None]
